FAERS Safety Report 9511547 (Version 2)
Quarter: 2013Q3

REPORT INFORMATION
  Report Type: Spontaneous
  Country: JP (occurrence: JP)
  Receive Date: 20130910
  Receipt Date: 20130919
  Transmission Date: 20140515
  Serious: Yes (Hospitalization)
  Sender: FDA-Public Use
  Company Number: JP-ELI_LILLY_AND_COMPANY-JP201309000023

PATIENT
  Age: 72 Year
  Sex: Female

DRUGS (2)
  1. HUMULIN NPH [Suspect]
     Indication: TYPE 2 DIABETES MELLITUS
     Dosage: UNK, EACH MORNING
     Route: 058
  2. INSULIN ASPART [Concomitant]
     Indication: TYPE 2 DIABETES MELLITUS
     Dosage: UNK UNK, TID
     Route: 058

REACTIONS (3)
  - Diabetes mellitus inadequate control [Recovering/Resolving]
  - Drug hypersensitivity [Recovered/Resolved]
  - Anti-insulin antibody positive [Unknown]
